FAERS Safety Report 6265001-X (Version None)
Quarter: 2009Q3

REPORT INFORMATION
  Report Type: 
  Country: None (occurrence: None)
  Receive Date: 20090713
  Receipt Date: 20070919
  Transmission Date: 20100115
  Serious: Yes (Other)
  Sender: FDA-Public Use
  Company Number: US-ASTRAZENECA-2006UW22583

PATIENT
  Age: 10403 Day
  Sex: Female
  Weight: 98.9 kg

DRUGS (33)
  1. SEROQUEL [Suspect]
     Indication: ANXIETY
     Dosage: 25 MG - 200 MG
     Route: 048
     Dates: start: 20001002
  2. SEROQUEL [Suspect]
     Indication: DEPRESSION
     Dosage: 25 MG - 200 MG
     Route: 048
     Dates: start: 20001002
  3. SEROQUEL [Suspect]
     Indication: SCHIZOPHRENIA
     Dosage: 25 MG - 200 MG
     Route: 048
     Dates: start: 20001002
  4. SEROQUEL [Suspect]
     Route: 048
     Dates: start: 20051119, end: 20060228
  5. SEROQUEL [Suspect]
     Route: 048
     Dates: start: 20051119, end: 20060228
  6. SEROQUEL [Suspect]
     Route: 048
     Dates: start: 20051119, end: 20060228
  7. ABILIFY [Concomitant]
  8. CLOZARIL [Concomitant]
  9. GEODON [Concomitant]
  10. HALDOL [Concomitant]
  11. RISPERDAL [Concomitant]
  12. THORAZINE [Concomitant]
  13. TRILAFON [Concomitant]
  14. ZYPREXA [Concomitant]
  15. ADVAIR HFA [Concomitant]
     Dosage: 50-500 MG
     Route: 065
  16. PREVACID [Concomitant]
     Route: 048
  17. IMITREX [Concomitant]
     Dosage: 100-400 MG
     Route: 048
  18. TOPAMAX [Concomitant]
     Route: 048
  19. FAMOTIDINE [Concomitant]
     Dosage: 20-30 MG
     Route: 048
  20. IBUPROFEN [Concomitant]
     Dosage: 400-800 MG
     Route: 048
  21. PROTONIX [Concomitant]
     Route: 048
  22. CYMBALTA [Concomitant]
     Dosage: 20-60 MG
     Route: 048
  23. PROZAC [Concomitant]
     Route: 048
  24. CITALOPRAM HYDROBROMIDE [Concomitant]
     Dosage: 20-40 MG
     Route: 048
  25. ROZEREM [Concomitant]
     Route: 048
  26. CLONAZEPAM [Concomitant]
     Route: 048
  27. LOVENOX [Concomitant]
     Dosage: 110-150 MG
     Route: 065
  28. DEPAKOTE [Concomitant]
     Route: 048
  29. METFORMIN HCL [Concomitant]
     Dosage: 500-1000 MG
     Route: 048
  30. ZYRTEC [Concomitant]
     Route: 048
  31. MOBAN [Concomitant]
     Route: 065
  32. COGENTIN [Concomitant]
     Route: 065
  33. ALBUTEROL [Concomitant]

REACTIONS (2)
  - DIABETES MELLITUS [None]
  - TARDIVE DYSKINESIA [None]
